FAERS Safety Report 5086354-4 (Version None)
Quarter: 2006Q3

REPORT INFORMATION
  Report Type: 
  Country: None (occurrence: None)
  Receive Date: 20060703
  Receipt Date: 20060308
  Transmission Date: 20061208
  Serious: No
  Sender: FDA-Public Use
  Company Number: 2006S1002062

PATIENT
  Age: 52 Year
  Sex: Male

DRUGS (8)
  1. CLOZAPINE [Suspect]
     Indication: SCHIZOPHRENIA
     Dosage: SEE IMAGE
     Route: 048
     Dates: start: 20060101
  2. CLOZAPINE [Suspect]
     Indication: SCHIZOPHRENIA
     Dosage: SEE IMAGE
     Route: 048
     Dates: start: 20060101
  3. FLUDROCORTISONE ACETATE [Concomitant]
  4. VALPROATE SODIUM [Concomitant]
  5. ESCITALOPRAM OXALATE [Concomitant]
  6. ARIPIPRAZOLE [Concomitant]
  7. ASCORBIC ACID/BIOTIN/TOCOPHEROL/NICOTINIC ACID/RETINOL/VITAMIN D NOS/M [Concomitant]
  8. ERGOCALCIFEROL/ASCORBIC ACID/CALCIUM GLUCONATE/CALCIUM LACTATE/CALCIUM [Concomitant]

REACTIONS (1)
  - GRANULOCYTOPENIA [None]
